FAERS Safety Report 6222025-6 (Version None)
Quarter: 2009Q2

REPORT INFORMATION
  Report Type: 
  Country: None (occurrence: None)
  Receive Date: 20090611
  Receipt Date: 20090602
  Transmission Date: 20091009
  Serious: Yes (Other)
  Sender: FDA-Public Use
  Company Number: US-JNJFOC-20090601511

PATIENT
  Sex: Female
  Weight: 122.47 kg

DRUGS (6)
  1. TOPAMAX [Suspect]
     Route: 048
  2. TOPAMAX [Suspect]
     Indication: AFFECTIVE DISORDER
     Route: 048
  3. LEVOTHYROXINE [Concomitant]
     Indication: HYPOTHYROIDISM
  4. LORATADINE [Concomitant]
     Indication: ASTHMA
  5. ESTROPIPATE [Concomitant]
     Indication: HORMONE REPLACEMENT THERAPY
  6. UNKNOWN MEDICATION [Concomitant]
     Indication: HYPERTENSION

REACTIONS (4)
  - DRUG INEFFECTIVE [None]
  - GOUT [None]
  - RENAL FUNCTION TEST ABNORMAL [None]
  - WEIGHT DECREASED [None]
